FAERS Safety Report 6884943-5 (Version None)
Quarter: 2010Q3

REPORT INFORMATION
  Report Type: 
  Country: None (occurrence: None)
  Receive Date: 20100729
  Receipt Date: 20080116
  Transmission Date: 20110219
  Serious: Yes (Death, Hospitalization, Other)
  Sender: FDA-Public Use
  Company Number: US-PFIZER INC-2007067540

PATIENT
  Sex: Male
  Weight: 133.8 kg

DRUGS (2)
  1. CELEBREX [Suspect]
     Indication: ARTHRITIS
     Dates: start: 19990301, end: 20000904
  2. CELEBREX [Suspect]
     Indication: JOINT STIFFNESS

REACTIONS (1)
  - MYOCARDIAL INFARCTION [None]
